FAERS Safety Report 15575930 (Version 1)
Quarter: 2018Q4

REPORT INFORMATION
  Report Type: Spontaneous
  Country: US (occurrence: US)
  Receive Date: 20181101
  Receipt Date: 20181101
  Transmission Date: 20190205
  Serious: No
  Sender: FDA-Public Use
  Company Number: US-B.I. PHARMACEUTICALS,INC./RIDGEFIELD-2018-BI-052031

PATIENT
  Age: 68 Year
  Sex: Female

DRUGS (1)
  1. OFEV [Suspect]
     Active Substance: NINTEDANIB
     Indication: IDIOPATHIC PULMONARY FIBROSIS
     Dosage: ONE CAPSULE TWICE DAILY;  STRENGTH: 150 MG; FORMULATION: CAPSULE ACTION(S) TAKEN: DOSE NOT CHANGED
     Route: 048
     Dates: start: 201607

REACTIONS (2)
  - Diarrhoea [Not Recovered/Not Resolved]
  - Colitis microscopic [Not Recovered/Not Resolved]

NARRATIVE: CASE EVENT DATE: 201612
